FAERS Safety Report 5794767-8 (Version None)
Quarter: 2008Q2

REPORT INFORMATION
  Report Type: 
  Country: None (occurrence: None)
  Receive Date: 20080630
  Receipt Date: 20080620
  Transmission Date: 20081010
  Serious: Yes (Death, Congenital Anomaly)
  Sender: FDA-Public Use
  Company Number: US-AMGEN-US289324

PATIENT

DRUGS (3)
  1. ENBREL [Suspect]
     Route: 064
     Dates: start: 20071029
  2. VITAMIN TAB [Concomitant]
     Route: 064
     Dates: start: 20071214
  3. LORTAB [Concomitant]
     Route: 064
     Dates: start: 20071029

REACTIONS (1)
  - CONGENITAL CARDIOVASCULAR ANOMALY [None]
